FAERS Safety Report 8157123-3 (Version None)
Quarter: 2012Q1

REPORT INFORMATION
  Report Type: 
  Country: None (occurrence: None)
  Receive Date: 20120222
  Receipt Date: 20120213
  Transmission Date: 20120608
  Serious: Yes (Hospitalization, Disabling)
  Sender: FDA-Public Use
  Company Number: US-NOVOPROD-344918

PATIENT
  Age: 69 Year
  Sex: Male
  Weight: 99.773 kg

DRUGS (3)
  1. LISINOPRIL [Concomitant]
     Indication: HYPERTENSION
  2. VICTOZA [Suspect]
     Indication: TYPE 2 DIABETES MELLITUS
     Dosage: 1.2 MG, QD
     Route: 058
     Dates: start: 20110805, end: 20110815
  3. METFORMIN HCL [Concomitant]
     Indication: TYPE 2 DIABETES MELLITUS

REACTIONS (5)
  - PANCREATITIS [None]
  - RENAL FAILURE [None]
  - PNEUMOTHORAX [None]
  - PANCREATIC PSEUDOCYST [None]
  - WEIGHT DECREASED [None]
